FAERS Safety Report 20063492 (Version 3)
Quarter: 2025Q3

REPORT INFORMATION
  Report Type: Spontaneous
  Country: EU (occurrence: EU)
  Receive Date: 20211112
  Receipt Date: 20250807
  Transmission Date: 20251021
  Serious: Yes (Death, Life-Threatening, Hospitalization, Other)
  Sender: MYLAN
  Company Number: EU-PFIZER INC-202101000944

PATIENT
  Age: 3 Year
  Sex: Male

DRUGS (36)
  1. VORICONAZOLE [Suspect]
     Active Substance: VORICONAZOLE
     Indication: Infection
  2. VORICONAZOLE [Suspect]
     Active Substance: VORICONAZOLE
     Route: 065
  3. VORICONAZOLE [Suspect]
     Active Substance: VORICONAZOLE
     Route: 065
  4. VORICONAZOLE [Suspect]
     Active Substance: VORICONAZOLE
  5. CASPOFUNGIN [Suspect]
     Active Substance: CASPOFUNGIN
     Indication: Infection
  6. CASPOFUNGIN [Suspect]
     Active Substance: CASPOFUNGIN
     Route: 065
  7. CASPOFUNGIN [Suspect]
     Active Substance: CASPOFUNGIN
     Route: 065
  8. CASPOFUNGIN [Suspect]
     Active Substance: CASPOFUNGIN
  9. CYCLOSPORINE [Suspect]
     Active Substance: CYCLOSPORINE
     Indication: Allogenic stem cell transplantation
  10. CYCLOSPORINE [Suspect]
     Active Substance: CYCLOSPORINE
     Route: 065
  11. CYCLOSPORINE [Suspect]
     Active Substance: CYCLOSPORINE
     Route: 065
  12. CYCLOSPORINE [Suspect]
     Active Substance: CYCLOSPORINE
  13. FLUCONAZOLE [Suspect]
     Active Substance: FLUCONAZOLE
     Indication: Infection
  14. FLUCONAZOLE [Suspect]
     Active Substance: FLUCONAZOLE
     Route: 065
  15. FLUCONAZOLE [Suspect]
     Active Substance: FLUCONAZOLE
     Route: 065
  16. FLUCONAZOLE [Suspect]
     Active Substance: FLUCONAZOLE
  17. MICAFUNGIN [Suspect]
     Active Substance: MICAFUNGIN SODIUM
     Indication: Antifungal prophylaxis
  18. MICAFUNGIN [Suspect]
     Active Substance: MICAFUNGIN SODIUM
     Route: 065
  19. MICAFUNGIN [Suspect]
     Active Substance: MICAFUNGIN SODIUM
     Route: 065
  20. MICAFUNGIN [Suspect]
     Active Substance: MICAFUNGIN SODIUM
  21. THIOTEPA [Suspect]
     Active Substance: THIOTEPA
     Indication: Prophylaxis against graft versus host disease
  22. THIOTEPA [Suspect]
     Active Substance: THIOTEPA
     Indication: Allogenic stem cell transplantation
     Route: 065
  23. THIOTEPA [Suspect]
     Active Substance: THIOTEPA
     Route: 065
  24. THIOTEPA [Suspect]
     Active Substance: THIOTEPA
  25. TREOSULFAN [Suspect]
     Active Substance: TREOSULFAN
     Indication: Prophylaxis against graft versus host disease
  26. TREOSULFAN [Suspect]
     Active Substance: TREOSULFAN
     Indication: Allogenic stem cell transplantation
     Route: 065
  27. TREOSULFAN [Suspect]
     Active Substance: TREOSULFAN
     Route: 065
  28. TREOSULFAN [Suspect]
     Active Substance: TREOSULFAN
  29. THYMOCYTE IMMUNE GLOBULIN NOS [Suspect]
     Active Substance: THYMOCYTE IMMUNE GLOBULIN NOS
     Indication: Prophylaxis against graft versus host disease
  30. THYMOCYTE IMMUNE GLOBULIN NOS [Suspect]
     Active Substance: THYMOCYTE IMMUNE GLOBULIN NOS
     Route: 065
  31. THYMOCYTE IMMUNE GLOBULIN NOS [Suspect]
     Active Substance: THYMOCYTE IMMUNE GLOBULIN NOS
     Route: 065
  32. THYMOCYTE IMMUNE GLOBULIN NOS [Suspect]
     Active Substance: THYMOCYTE IMMUNE GLOBULIN NOS
  33. FLUDARABINE [Concomitant]
     Active Substance: FLUDARABINE PHOSPHATE
     Indication: Prophylaxis against graft versus host disease
  34. FLUDARABINE [Concomitant]
     Active Substance: FLUDARABINE PHOSPHATE
     Indication: Allogenic stem cell transplantation
     Route: 065
  35. FLUDARABINE [Concomitant]
     Active Substance: FLUDARABINE PHOSPHATE
     Route: 065
  36. FLUDARABINE [Concomitant]
     Active Substance: FLUDARABINE PHOSPHATE

REACTIONS (20)
  - Multiple organ dysfunction syndrome [Fatal]
  - Drug resistance [Unknown]
  - Anuria [Unknown]
  - Renal failure [Unknown]
  - Respiratory failure [Unknown]
  - Febrile neutropenia [Unknown]
  - Intestinal haemorrhage [Unknown]
  - Venoocclusive liver disease [Unknown]
  - Pyrexia [Unknown]
  - Sepsis [Unknown]
  - Graft versus host disease in gastrointestinal tract [Unknown]
  - Peritonitis [Unknown]
  - Fluid retention [Unknown]
  - Ascites [Unknown]
  - Enterococcal infection [Unknown]
  - Stenotrophomonas infection [Unknown]
  - Protothecosis [Unknown]
  - Staphylococcal infection [Unknown]
  - Klebsiella infection [Unknown]
  - Candida infection [Unknown]
